FAERS Safety Report 23805642 (Version 1)
Quarter: 2024Q2

REPORT INFORMATION
  Report Type: Spontaneous
  Country: IN (occurrence: IN)
  Receive Date: 20240502
  Receipt Date: 20240502
  Transmission Date: 20240716
  Serious: No
  Sender: FDA-Public Use
  Company Number: IN-ALKEM LABORATORIES LIMITED-IN-ALKEM-2023-05109

PATIENT

DRUGS (2)
  1. LIDOCAINE [Suspect]
     Active Substance: LIDOCAINE
     Indication: Skin papilloma
     Dosage: 0.2 MILLILITER (THE SELECTED WARTS WERE INJECTED FIRST WITH 0.2 ML OF LIGNOCAINE (20 MG/ML))
     Route: 065
  2. CHOLECALCIFEROL [Suspect]
     Active Substance: CHOLECALCIFEROL
     Indication: Skin papilloma
     Dosage: 0.2 MILLILITER (AFTER FEW MINUTES, WAS SLOWLY INJECTED INTO THE BASE OF EACH WART WITH A 27-GAUGE IN
     Route: 026

REACTIONS (1)
  - Pigmentation disorder [Unknown]
